FAERS Safety Report 15496740 (Version 14)
Quarter: 2020Q1

REPORT INFORMATION
  Report Type: Report from Study
  Country: BR (occurrence: BR)
  Receive Date: 20181014
  Receipt Date: 20200330
  Transmission Date: 20200409
  Serious: Yes (Life-Threatening, Hospitalization, Disabling, Other)
  Sender: FDA-Public Use
  Company Number: PHHY2018BR069893

PATIENT
  Age: 83 Year
  Sex: Female
  Weight: 97 kg

DRUGS (17)
  1. HYDROCHLOROTHIAZIDE. [Concomitant]
     Active Substance: HYDROCHLOROTHIAZIDE
     Indication: BLOOD PRESSURE ABNORMAL
     Dosage: 25 MG, QD
     Route: 065
  2. SANDOSTATIN LAR DEPOT [Suspect]
     Active Substance: OCTREOTIDE ACETATE
     Indication: ACROMEGALY
     Dosage: 30 MG, QMO
     Route: 030
     Dates: start: 20100101
  3. SANDOSTATIN LAR DEPOT [Suspect]
     Active Substance: OCTREOTIDE ACETATE
     Dosage: 30 MG, QMO (EVERY 28 DAYS)
     Route: 030
     Dates: start: 20200109
  4. SOMATOSTATIN [Concomitant]
     Active Substance: SOMATOSTATIN
     Indication: PRODUCT USED FOR UNKNOWN INDICATION
     Dosage: 1 DF, UNK
     Route: 048
  5. AMITRIPTYLINE [Concomitant]
     Active Substance: AMITRIPTYLINE
     Indication: PRODUCT USED FOR UNKNOWN INDICATION
     Dosage: 20 MG, UNK
     Route: 065
  6. ESTRIOL [Concomitant]
     Active Substance: ESTRIOL
     Indication: PRODUCT USED FOR UNKNOWN INDICATION
     Dosage: 1 MG, UNK
     Route: 067
     Dates: start: 20120925, end: 20121010
  7. SANDOSTATIN LAR DEPOT [Suspect]
     Active Substance: OCTREOTIDE ACETATE
     Dosage: UNK
     Route: 030
     Dates: start: 20181010
  8. SANDOSTATIN LAR DEPOT [Suspect]
     Active Substance: OCTREOTIDE ACETATE
     Dosage: UNK
     Route: 030
     Dates: start: 20181207
  9. HYDROCHLOROTHIAZIDE. [Concomitant]
     Active Substance: HYDROCHLOROTHIAZIDE
     Dosage: 50 MG, QD
     Route: 065
  10. DIPYRONE [Concomitant]
     Active Substance: DIPYRONE
     Indication: PRODUCT USED FOR UNKNOWN INDICATION
     Route: 065
  11. STELE [Concomitant]
     Indication: PRODUCT USED FOR UNKNOWN INDICATION
     Dosage: 1 MG, UNK
     Route: 067
     Dates: start: 20120925, end: 20121010
  12. SANDOSTATIN LAR DEPOT [Suspect]
     Active Substance: OCTREOTIDE ACETATE
     Dosage: 30 MG, QMO (EVERY 28 DAYS)
     Route: 030
  13. CABERGOLINE. [Concomitant]
     Active Substance: CABERGOLINE
     Indication: ACROMEGALY
     Dosage: 5 MG, UNK
     Route: 065
  14. LOSARTAN. [Suspect]
     Active Substance: LOSARTAN
     Indication: HYPERTENSION
     Dosage: 1 DF, QD
     Route: 048
  15. METHYLDOPA. [Concomitant]
     Active Substance: METHYLDOPA
     Indication: PRODUCT USED FOR UNKNOWN INDICATION
     Dosage: 500 MG, UNK
     Route: 065
  16. CABERGOLINE. [Concomitant]
     Active Substance: CABERGOLINE
     Dosage: 20 MG, QD
     Route: 048
     Dates: start: 2010
  17. ISARTAN [Concomitant]
     Indication: HYPERTENSION
     Dosage: UNK
     Route: 065

REACTIONS (57)
  - Joint stiffness [Unknown]
  - Anosmia [Not Recovered/Not Resolved]
  - Obesity [Not Recovered/Not Resolved]
  - Pain [Unknown]
  - Visual impairment [Recovered/Resolved]
  - Concomitant disease aggravated [Not Recovered/Not Resolved]
  - Nervous system disorder [Not Recovered/Not Resolved]
  - Insomnia [Unknown]
  - Pain in extremity [Recovered/Resolved]
  - Memory impairment [Not Recovered/Not Resolved]
  - Injection site haemorrhage [Unknown]
  - Blood pressure fluctuation [Recovered/Resolved]
  - Blood pressure fluctuation [Unknown]
  - Finger deformity [Not Recovered/Not Resolved]
  - Feeling abnormal [Unknown]
  - Sensory loss [Not Recovered/Not Resolved]
  - Paralysis [Unknown]
  - Pain in extremity [Recovered/Resolved]
  - Limb discomfort [Not Recovered/Not Resolved]
  - Colitis [Not Recovered/Not Resolved]
  - Musculoskeletal discomfort [Unknown]
  - Hordeolum [Not Recovered/Not Resolved]
  - Weight decreased [Unknown]
  - Breast haemorrhage [Recovered/Resolved]
  - Head discomfort [Unknown]
  - Arthralgia [Unknown]
  - Feeding disorder [Recovering/Resolving]
  - Mouth swelling [Not Recovered/Not Resolved]
  - Facial pain [Recovered/Resolved]
  - Sensory disturbance [Unknown]
  - Dysuria [Not Recovered/Not Resolved]
  - Mobility decreased [Not Recovered/Not Resolved]
  - Bacterial abdominal infection [Unknown]
  - Colitis [Recovered/Resolved]
  - Skin discolouration [Unknown]
  - Hypertension [Recovered/Resolved]
  - Joint effusion [Unknown]
  - Ageusia [Recovered/Resolved]
  - Musculoskeletal stiffness [Unknown]
  - Gait inability [Not Recovered/Not Resolved]
  - Cognitive disorder [Unknown]
  - Gastrointestinal disorder [Recovering/Resolving]
  - Keloid scar [Not Recovered/Not Resolved]
  - Glossodynia [Recovered/Resolved]
  - Pain in extremity [Not Recovered/Not Resolved]
  - Headache [Recovered/Resolved]
  - Haematochezia [Recovering/Resolving]
  - Dysentery [Recovering/Resolving]
  - Acromegaly [Unknown]
  - Malignant neoplasm progression [Unknown]
  - Aphasia [Recovered/Resolved]
  - Fatigue [Unknown]
  - Speech disorder [Recovered/Resolved]
  - Malaise [Not Recovered/Not Resolved]
  - Tongue disorder [Recovered/Resolved]
  - Peripheral swelling [Recovered/Resolved]
  - Eye pain [Recovered/Resolved]

NARRATIVE: CASE EVENT DATE: 20181207
